FAERS Safety Report 5596469-X (Version None)
Quarter: 2008Q1

REPORT INFORMATION
  Report Type: 
  Country: None (occurrence: None)
  Receive Date: 20080118
  Receipt Date: 20080107
  Transmission Date: 20080703
  Serious: Yes (Other)
  Sender: FDA-Public Use
  Company Number: US-PFIZER INC-2007071150

PATIENT
  Sex: Female
  Weight: 134.3 kg

DRUGS (22)
  1. CHANTIX [Suspect]
     Indication: SMOKING CESSATION THERAPY
     Route: 048
     Dates: start: 20070802, end: 20071015
  2. DESIPRAMINE HCL [Concomitant]
  3. SEROQUEL [Concomitant]
  4. ABILIFY [Concomitant]
  5. TRILEPTAL [Concomitant]
  6. TRICOR [Concomitant]
  7. WELLBUTRIN [Concomitant]
  8. ACCUPRIL [Concomitant]
  9. ZETIA [Concomitant]
  10. LEVOXYL [Concomitant]
  11. LASIX [Concomitant]
  12. GLUCOPHAGE [Concomitant]
  13. VITAMIN CAP [Concomitant]
  14. FENTANYL [Concomitant]
  15. AVAPRO [Concomitant]
     Route: 048
  16. LYRICA [Concomitant]
     Route: 048
  17. CYMBALTA [Concomitant]
     Route: 048
  18. LAMICTAL [Concomitant]
     Route: 048
  19. PALIPERIDONE [Concomitant]
     Route: 048
  20. DRUG, UNSPECIFIED [Concomitant]
  21. KLONOPIN [Concomitant]
  22. PERCOCET [Concomitant]
     Route: 048

REACTIONS (8)
  - DIZZINESS [None]
  - FEELING ABNORMAL [None]
  - FEELING OF BODY TEMPERATURE CHANGE [None]
  - NAUSEA [None]
  - OEDEMA PERIPHERAL [None]
  - PAIN [None]
  - PARAESTHESIA [None]
  - PARANOIA [None]
